FAERS Safety Report 11113283 (Version 1)
Quarter: 2015Q2

REPORT INFORMATION
  Report Type: Spontaneous
  Country: US (occurrence: US)
  Receive Date: 20150514
  Receipt Date: 20150514
  Transmission Date: 20150821
  Serious: No
  Sender: FDA-Public Use
  Company Number: US-PFIZER INC-2015153533

PATIENT
  Age: 56 Year
  Sex: Male
  Weight: 92 kg

DRUGS (8)
  1. ARMOUR THYROID [Concomitant]
     Active Substance: THYROID, PORCINE\THYROID, UNSPECIFIED
     Indication: HYPOTHYROIDISM
     Dosage: 90 MG, UNK
  2. ASPIRIN BAYER [Suspect]
     Active Substance: ASPIRIN
     Indication: PROPHYLAXIS
     Dosage: 81 MG, 1X/DAY
     Route: 048
     Dates: end: 20150427
  3. MELATONIN [Suspect]
     Active Substance: MELATONIN
     Dosage: 5 MG, 1X/DAY (NIGHT)
     Dates: end: 20150427
  4. DHA (DOCONEXENT) [Suspect]
     Active Substance: DOCONEXENT
     Dosage: 1000 MG, 2X/DAY
     Dates: end: 20150427
  5. EICOSAPENTAENOIC ACID ETHYL ESTER [Suspect]
     Active Substance: ICOSAPENT ETHYL
     Dosage: 1000 MG, 2X/DAY (1X/ MORNING AND 1X/ NIGHT)
     Dates: end: 20150427
  6. MAGNESIUM [Suspect]
     Active Substance: MAGNESIUM
     Dosage: 2 DF, 2X/DAY
     Dates: end: 20150427
  7. VITAMIN D3 [Suspect]
     Active Substance: CHOLECALCIFEROL
     Dosage: 5000 IU, 1X/DAY (AT NIGHT)
     Dates: end: 20150427
  8. LIPITOR [Suspect]
     Active Substance: ATORVASTATIN CALCIUM
     Indication: BLOOD CHOLESTEROL INCREASED
     Dosage: 10 MG, 1X/DAY
     Route: 048
     Dates: end: 20150429

REACTIONS (2)
  - Erythema [Recovering/Resolving]
  - Rash [Recovering/Resolving]

NARRATIVE: CASE EVENT DATE: 20150424
